FAERS Safety Report 4690226-4 (Version None)
Quarter: 2005Q2

REPORT INFORMATION
  Report Type: 
  Country: None (occurrence: None)
  Receive Date: 20050614
  Receipt Date: 20050614
  Transmission Date: 20051028
  Serious: Yes (Disabling, Other)
  Sender: FDA-Public Use
  Company Number: None

PATIENT
  Age: 65 Year
  Sex: Female
  Weight: 68.4932 kg

DRUGS (2)
  1. CRESTOR [Suspect]
     Indication: BLOOD CHOLESTEROL INCREASED
     Dosage: 10 MG 1XDAILY
     Dates: start: 20030901, end: 20040901
  2. ZETIA [Suspect]
     Indication: BLOOD CHOLESTEROL INCREASED
     Dosage: 10 MG 1 X DAILY
     Dates: start: 20030901, end: 20040901

REACTIONS (16)
  - ABASIA [None]
  - BURNING SENSATION [None]
  - CHROMATURIA [None]
  - COGNITIVE DISORDER [None]
  - DIARRHOEA [None]
  - DYSSTASIA [None]
  - FAECAL INCONTINENCE [None]
  - FALL [None]
  - GAIT DISTURBANCE [None]
  - HAEMORRHOIDS [None]
  - HEPATITIS [None]
  - INJURY [None]
  - MUSCLE DISORDER [None]
  - MUSCULAR WEAKNESS [None]
  - MYALGIA [None]
  - NEUROTOXICITY [None]
